FAERS Safety Report 5301891-2 (Version None)
Quarter: 2007Q2

REPORT INFORMATION
  Report Type: 
  Country: None (occurrence: None)
  Receive Date: 20070419
  Receipt Date: 20070412
  Transmission Date: 20071010
  Serious: Yes (Death)
  Sender: FDA-Public Use
  Company Number: GB-ROCHE-492628

PATIENT
  Age: 71 Year
  Sex: Female
  Weight: 84 kg

DRUGS (2)
  1. CAPECITABINE [Suspect]
     Indication: COLON CANCER
     Route: 048
     Dates: start: 20070115
  2. BEVACIZUMAB [Suspect]
     Indication: COLON CANCER
     Route: 042
     Dates: start: 20070115

REACTIONS (1)
  - CARDIAC ARREST [None]
